FAERS Safety Report 10047738 (Version 1)
Quarter: 2014Q1

REPORT INFORMATION
  Report Type: Spontaneous
  Country: US (occurrence: None)
  Receive Date: 20140327
  Receipt Date: 20140327
  Transmission Date: 20141002
  Serious: Yes (Life-Threatening)
  Sender: FDA-Public Use
  Company Number: PI-10200

PATIENT
  Age: 71 Year
  Sex: Female

DRUGS (7)
  1. CHLORAPREP [Suspect]
     Indication: INFECTION PROPHYLAXIS
     Route: 061
     Dates: start: 20120601
  2. CHLORAPREP [Suspect]
     Indication: PREOPERATIVE CARE
     Route: 061
     Dates: start: 20120601
  3. OTHER CHLORHEXIDINE PRODUCTS USED FOR CATHETER DISINFECTION [Concomitant]
  4. SUXMETHONIUM [Concomitant]
  5. PENICLLIN [Concomitant]
  6. LATEX [Concomitant]
  7. PROVIDONE IODINE [Concomitant]

REACTIONS (1)
  - Anaphylactic reaction [None]
